FAERS Safety Report 9826254 (Version 2)
Quarter: 2014Q1

REPORT INFORMATION
  Report Type: Report from Study
  Country: US (occurrence: US)
  Receive Date: 20140117
  Receipt Date: 20140218
  Transmission Date: 20141002
  Serious: Yes (Other)
  Sender: FDA-Public Use
  Company Number: US-IPSEN BIOPHARMACEUTICALS, INC.-2014-0155

PATIENT
  Age: 59 Year
  Sex: Female

DRUGS (3)
  1. SOMATULINE DEPOT INJECTION (120MG) [Suspect]
     Indication: ACROMEGALY
     Dosage: 120 MG
     Route: 058
     Dates: start: 20120502
  2. SOMATULINE DEPOT INJECTION (120MG) [Suspect]
     Indication: PITUITARY TUMOUR
     Dosage: 120 MG
     Route: 058
  3. TEMODAR [Concomitant]
     Indication: CHEMOTHERAPY
     Dosage: 1 A DAY FOR FIVE DAYS, THEN THREE WEEKS OFF
     Route: 065

REACTIONS (2)
  - Metastasis [Unknown]
  - Inappropriate schedule of drug administration [Unknown]
